FAERS Safety Report 9398516 (Version 3)
Quarter: 2013Q4

REPORT INFORMATION
  Report Type: Spontaneous
  Country: BR (occurrence: BR)
  Receive Date: 20130712
  Receipt Date: 20131016
  Transmission Date: 20140711
  Serious: Yes (Other)
  Sender: FDA-Public Use
  Company Number: BR-BRISTOL-MYERS SQUIBB COMPANY-19103175

PATIENT
  Age: 61 Year
  Sex: Female
  Weight: 64 kg

DRUGS (6)
  1. METFORMIN HCL [Suspect]
     Indication: DIABETES MELLITUS
     Dosage: GLIFAGE 500, 750?AFTER 2003 SHE REPLACED METFORMIN FOR INSULIN
  2. INSULIN [Suspect]
     Indication: DIABETES MELLITUS
  3. ARADOIS [Concomitant]
  4. AMLODIPINE [Concomitant]
  5. THIOCTACID [Concomitant]
     Dosage: THIOCTACID HR 600
  6. LEXOTAN [Concomitant]
     Dosage: AT NT

REACTIONS (5)
  - Gastric cancer [Unknown]
  - Abdominal pain [Unknown]
  - Diarrhoea [Unknown]
  - Abdominal discomfort [Unknown]
  - Dysentery [Unknown]
